FAERS Safety Report 5712498-7 (Version None)
Quarter: 2008Q2

REPORT INFORMATION
  Report Type: 
  Country: None (occurrence: None)
  Receive Date: 20080418
  Receipt Date: 20080407
  Transmission Date: 20081010
  Serious: Yes (Other)
  Sender: FDA-Public Use
  Company Number: 230932K05USA

PATIENT
  Age: 42 Year
  Sex: Female
  Weight: 138.3471 kg

DRUGS (8)
  1. REBIF [Suspect]
     Indication: MULTIPLE SCLEROSIS
     Dosage: 22 MCG, 3 IN 1 WEEKS, SUBCUTANEOUS, 44 MCG, 3 IN 1 WEEKS, SUBCUTANEOUS
     Route: 058
     Dates: start: 20050101, end: 20050501
  2. REBIF [Suspect]
     Indication: MULTIPLE SCLEROSIS
     Dosage: 22 MCG, 3 IN 1 WEEKS, SUBCUTANEOUS, 44 MCG, 3 IN 1 WEEKS, SUBCUTANEOUS
     Route: 058
     Dates: start: 20040924
  3. COPAXONE [Suspect]
     Indication: RELAPSING-REMITTING MULTIPLE SCLEROSIS
     Dates: start: 20050501, end: 20070101
  4. ASPIRIN [Concomitant]
  5. MULTIVITAMIN   (MULTIVITAMIN) [Concomitant]
  6. CALCIUM WITH VITAMIN D           (CALCIUM WITH VITAMIN D) [Concomitant]
  7. GINSENG GINGKO BILOBA       (GINSENG) [Concomitant]
  8. GREET TEA WITH HOODIA           (ALL OTHER NON-THERAPEUTIC PRODUCTS) [Concomitant]

REACTIONS (3)
  - DIABETES MELLITUS [None]
  - HEPATIC STEATOSIS [None]
  - LETHARGY [None]
